FAERS Safety Report 14416904 (Version 1)
Quarter: 2018Q1

REPORT INFORMATION
  Report Type: Spontaneous
  Country: US (occurrence: US)
  Receive Date: 20180119
  Receipt Date: 20180119
  Transmission Date: 20180509
  Serious: Yes (Hospitalization)
  Sender: FDA-Public Use
  Company Number: None

PATIENT
  Age: 21 Year
  Sex: Female

DRUGS (3)
  1. ASPIRIN. [Suspect]
     Active Substance: ASPIRIN
     Indication: THROMBOSIS PROPHYLAXIS
     Route: 048
     Dates: start: 20171005, end: 20171103
  2. NORGESTIMATE [Concomitant]
     Active Substance: NORGESTIMATE
  3. ETHINYL ESTRADIOL [Concomitant]
     Active Substance: ETHINYL ESTRADIOL

REACTIONS (5)
  - Nausea [None]
  - Haematemesis [None]
  - Melaena [None]
  - Occult blood positive [None]
  - Dizziness [None]

NARRATIVE: CASE EVENT DATE: 20171103
